FAERS Safety Report 4785459-2 (Version None)
Quarter: 2005Q3

REPORT INFORMATION
  Report Type: 
  Country: None (occurrence: None)
  Receive Date: 20050926
  Receipt Date: 20050912
  Transmission Date: 20060218
  Serious: Yes (Other)
  Sender: FDA-Public Use
  Company Number: HQWYE464214SEP05

PATIENT
  Age: 49 Year
  Sex: Male
  Weight: 68.1 kg

DRUGS (3)
  1. BENEFIX [Suspect]
     Indication: FACTOR IX DEFICIENCY
     Dosage: SEE IMAGE
     Route: 042
     Dates: start: 20050831, end: 20050831
  2. BENEFIX [Suspect]
     Indication: FACTOR IX DEFICIENCY
     Dosage: SEE IMAGE
     Route: 042
     Dates: start: 20050901, end: 20050913
  3. BENEFIX [Suspect]
     Indication: FACTOR IX DEFICIENCY
     Dosage: SEE IMAGE
     Route: 042
     Dates: start: 20050914

REACTIONS (2)
  - DRUG EFFECT DECREASED [None]
  - HAEMORRHAGE [None]
